FAERS Safety Report 9917509 (Version 2)
Quarter: 2014Q1

REPORT INFORMATION
  Report Type: Spontaneous
  Country: DE (occurrence: DE)
  Receive Date: 20140221
  Receipt Date: 20140317
  Transmission Date: 20141002
  Serious: Yes (Other)
  Sender: FDA-Public Use
  Company Number: DE-TEVA-462010GER

PATIENT
  Age: 49 Year
  Sex: Female
  Weight: 76 kg

DRUGS (1)
  1. CARBOPLATIN-GRY [Suspect]
     Indication: OVARIAN CANCER
     Route: 042
     Dates: start: 20140207

REACTIONS (2)
  - Bronchial obstruction [Recovered/Resolved]
  - Paraesthesia [Recovered/Resolved]
